FAERS Safety Report 6877711-1 (Version None)
Quarter: 2010Q3

REPORT INFORMATION
  Report Type: 
  Country: None (occurrence: None)
  Receive Date: 20100727
  Receipt Date: 20100720
  Transmission Date: 20110219
  Serious: No
  Sender: FDA-Public Use
  Company Number: US-ABBOTT-10P-163-0652406-00

PATIENT
  Sex: Female
  Weight: 69.462 kg

DRUGS (4)
  1. SYNTHROID [Suspect]
     Indication: THYROID FUNCTION TEST ABNORMAL
     Route: 048
  2. SYNTHROID [Suspect]
     Route: 048
  3. AUGMENTIN '125' [Suspect]
     Indication: SINUSITIS
     Dosage: 500 MG/1.25 MG
  4. VIT C [Concomitant]
     Indication: IMMUNODEFICIENCY

REACTIONS (16)
  - BACK PAIN [None]
  - CHEST PAIN [None]
  - COLD SWEAT [None]
  - CONJUNCTIVITIS INFECTIVE [None]
  - EYE IRRITATION [None]
  - FEAR [None]
  - FEELING JITTERY [None]
  - HYPERHIDROSIS [None]
  - IMMUNODEFICIENCY [None]
  - INCORRECT DOSE ADMINISTERED [None]
  - MALAISE [None]
  - MYALGIA [None]
  - NASOPHARYNGITIS [None]
  - RHINORRHOEA [None]
  - SINUSITIS [None]
  - TREMOR [None]
